FAERS Safety Report 9121557 (Version 1)
Quarter: 2013Q1

REPORT INFORMATION
  Report Type: Spontaneous
  Country: US (occurrence: US)
  Receive Date: 20130227
  Receipt Date: 20130227
  Transmission Date: 20140127
  Serious: No
  Sender: FDA-Public Use
  Company Number: US-009507513-1302USA011137

PATIENT
  Sex: Male

DRUGS (7)
  1. JANUMET [Suspect]
     Indication: DIABETES MELLITUS
     Dosage: 50/1000MG, BID
     Route: 048
  2. JANUMET XR [Suspect]
     Dosage: UNK
     Dates: start: 201212
  3. AMARYL [Concomitant]
     Dosage: UNK
  4. OMEPRAZOLE [Concomitant]
     Dosage: UNK
  5. ALLOPURINOL [Concomitant]
     Dosage: UNK
  6. CARVEDILOL [Concomitant]
     Dosage: UNK
  7. TORSEMIDE [Concomitant]
     Dosage: UNK

REACTIONS (3)
  - Blood glucose abnormal [Not Recovered/Not Resolved]
  - Diarrhoea [Not Recovered/Not Resolved]
  - Headache [Not Recovered/Not Resolved]
